FAERS Safety Report 18652881 (Version 1)
Quarter: 2020Q4

REPORT INFORMATION
  Report Type: Spontaneous
  Country: US (occurrence: US)
  Receive Date: 20201223
  Receipt Date: 20201223
  Transmission Date: 20210114
  Serious: Yes (Hospitalization)
  Sender: FDA-Public Use
  Company Number: US-TAKEDA-2020TUS057536

PATIENT
  Age: 65 Year
  Sex: Female

DRUGS (22)
  1. GAMMAGARD LIQUID [Suspect]
     Active Substance: HUMAN IMMUNOGLOBULIN G
     Indication: B-LYMPHOCYTE ABNORMALITIES
  2. LIDOCAINE. [Concomitant]
     Active Substance: LIDOCAINE
  3. SODIUM CHLORIDE. [Concomitant]
     Active Substance: SODIUM CHLORIDE
  4. DIPHENHYDRAMINE. [Concomitant]
     Active Substance: DIPHENHYDRAMINE
  5. EPINEPHRINE. [Concomitant]
     Active Substance: EPINEPHRINE
  6. TRAMADOL. [Concomitant]
     Active Substance: TRAMADOL
  7. RANEXA [Concomitant]
     Active Substance: RANOLAZINE
  8. FIORICET [Concomitant]
     Active Substance: ACETAMINOPHEN\BUTALBITAL\CAFFEINE
  9. CRESTOR [Concomitant]
     Active Substance: ROSUVASTATIN CALCIUM
  10. ESTRADIOL. [Concomitant]
     Active Substance: ESTRADIOL
  11. NADOLOL. [Concomitant]
     Active Substance: NADOLOL
  12. OXYBUTININ ACCORD [Concomitant]
     Active Substance: OXYBUTYNIN
  13. CHLORTHALIDONE. [Concomitant]
     Active Substance: CHLORTHALIDONE
  14. GAMMAGARD LIQUID [Suspect]
     Active Substance: HUMAN IMMUNOGLOBULIN G
     Indication: IMMUNODEFICIENCY COMMON VARIABLE
     Dosage: 50 GRAM, Q4WEEKS
     Route: 042
     Dates: start: 20201028
  15. NITROSTAT [Concomitant]
     Active Substance: NITROGLYCERIN
  16. BUDESONIDE. [Concomitant]
     Active Substance: BUDESONIDE
  17. AMIKACIN. [Concomitant]
     Active Substance: AMIKACIN
  18. POTASSIUM [Concomitant]
     Active Substance: POTASSIUM
  19. AMLODIPINE [Concomitant]
     Active Substance: AMLODIPINE BESYLATE
  20. LISINOPRIL. [Concomitant]
     Active Substance: LISINOPRIL
  21. GABAPENTIN. [Concomitant]
     Active Substance: GABAPENTIN
  22. OMEPRAZOLE. [Concomitant]
     Active Substance: OMEPRAZOLE

REACTIONS (1)
  - Catheterisation cardiac [Unknown]

NARRATIVE: CASE EVENT DATE: 20201208
